FAERS Safety Report 19352029 (Version 1)
Quarter: 2021Q2

REPORT INFORMATION
  Report Type: Report from Study
  Country: IT (occurrence: IT)
  Receive Date: 20210531
  Receipt Date: 20210531
  Transmission Date: 20210717
  Serious: Yes (Other)
  Sender: FDA-Public Use
  Company Number: IT-PFIZER INC-2021578588

PATIENT
  Age: 93 Year
  Sex: Female

DRUGS (4)
  1. XANAX [Suspect]
     Active Substance: ALPRAZOLAM
     Indication: ANXIETY
     Dosage: UNK
     Route: 048
     Dates: start: 20110408
  2. ELOPRAM [CITALOPRAM HYDROBROMIDE] [Concomitant]
     Dosage: UNK
     Dates: start: 20110408
  3. XANAX [Suspect]
     Active Substance: ALPRAZOLAM
     Dosage: 10 DF, TOTAL
     Route: 048
     Dates: start: 20210428, end: 20210429
  4. TRITTICO [Suspect]
     Active Substance: TRAZODONE HYDROCHLORIDE
     Indication: PSYCHOTIC DISORDER
     Dosage: UNK
     Route: 048
     Dates: end: 20210429

REACTIONS (4)
  - Sopor [Recovered/Resolved]
  - Overdose [Recovered/Resolved]
  - Drug abuse [Unknown]
  - Psychomotor hyperactivity [Recovered/Resolved]

NARRATIVE: CASE EVENT DATE: 20210429
